FAERS Safety Report 5133264-X (Version None)
Quarter: 2006Q4

REPORT INFORMATION
  Report Type: 
  Country: None (occurrence: None)
  Receive Date: 20060829
  Receipt Date: 20050906
  Transmission Date: 20070319
  Serious: Yes (Other)
  Sender: FDA-Public Use
  Company Number: PIR# 0509005

PATIENT
  Age: 55 Year
  Sex: Male

DRUGS (1)
  1. HEPARIN SODIUM [Suspect]
     Indication: DEEP VEIN THROMBOSIS
     Dosage: 25,000 UNIT-ONCE-IV
     Route: 042
     Dates: start: 20050729, end: 20050729

REACTIONS (2)
  - ACCIDENTAL OVERDOSE [None]
  - INCORRECT DRUG ADMINISTRATION RATE [None]
